FAERS Safety Report 5986020-4 (Version None)
Quarter: 2008Q4

REPORT INFORMATION
  Report Type: 
  Country: None (occurrence: None)
  Receive Date: 20081209
  Receipt Date: 20081205
  Transmission Date: 20090506
  Serious: No
  Sender: FDA-Public Use
  Company Number: JP-ASTRAZENECA-2008AP08832

PATIENT
  Age: 43 Year
  Sex: Male

DRUGS (8)
  1. CRESTOR [Suspect]
     Indication: HYPERLIPIDAEMIA
     Route: 048
     Dates: end: 20081104
  2. PANALDINE [Suspect]
     Indication: ANGINA PECTORIS
     Route: 048
     Dates: end: 20081104
  3. ASPIRIN [Concomitant]
     Indication: ANGINA PECTORIS
     Route: 048
  4. TAKEPRON [Concomitant]
     Indication: REFLUX OESOPHAGITIS
     Route: 048
  5. NU-LOTAN [Concomitant]
     Indication: ANGINA PECTORIS
     Route: 048
  6. ALDACTONE [Concomitant]
     Indication: HYPERTENSION
     Route: 048
  7. ARTIST [Concomitant]
     Indication: ANGINA PECTORIS
     Route: 048
  8. PLAVIX [Concomitant]
     Route: 048
     Dates: start: 20081104

REACTIONS (1)
  - HEPATIC FUNCTION ABNORMAL [None]
